FAERS Safety Report 7754748-1 (Version None)
Quarter: 2011Q3

REPORT INFORMATION
  Report Type: 
  Country: None (occurrence: None)
  Receive Date: 20110916
  Receipt Date: 20110902
  Transmission Date: 20111222
  Serious: Yes (Other)
  Sender: FDA-Public Use
  Company Number: NL-MYLANLABS-2011S1018845

PATIENT

DRUGS (5)
  1. METHOTREXATE [Concomitant]
     Indication: ACUTE LYMPHOCYTIC LEUKAEMIA
     Dosage: HIGH-DOSE
     Route: 065
  2. VORICONAZOLE [Suspect]
     Indication: EVIDENCE BASED TREATMENT
     Route: 042
  3. ITRACONAZOLE [Interacting]
     Indication: PROPHYLAXIS
     Route: 065
  4. VINCRISTINE [Interacting]
     Indication: ACUTE LYMPHOCYTIC LEUKAEMIA
     Dosage: 1.5 MG/M2 EVERY WEEK FOR A TOTAL OF 4 DOSES
     Route: 065
  5. VINCRISTINE [Interacting]
     Route: 065

REACTIONS (3)
  - NEUROTOXICITY [None]
  - CONSTIPATION [None]
  - NEUROPATHY PERIPHERAL [None]
